FAERS Safety Report 5041624-0 (Version None)
Quarter: 2006Q2

REPORT INFORMATION
  Report Type: 
  Country: None (occurrence: None)
  Receive Date: 20060601
  Receipt Date: 20060228
  Transmission Date: 20061013
  Serious: No
  Sender: FDA-Public Use
  Company Number: 2006PV009434

PATIENT
  Age: 56 Year
  Sex: Male
  Weight: 120.2032 kg

DRUGS (5)
  1. BYETTA [Suspect]
     Indication: DIABETES MELLITUS NON-INSULIN-DEPENDENT
     Dosage: SEE IMAGE
     Route: 058
     Dates: start: 20051220, end: 20060119
  2. BYETTA [Suspect]
     Indication: DIABETES MELLITUS NON-INSULIN-DEPENDENT
     Dosage: SEE IMAGE
     Route: 058
     Dates: start: 20060120
  3. GLUCOTROL [Concomitant]
  4. GLUCOPHAGE [Concomitant]
  5. AVANDAMET [Concomitant]

REACTIONS (4)
  - HANGOVER [None]
  - HEADACHE [None]
  - NAUSEA [None]
  - VOMITING [None]
